FAERS Safety Report 19521068 (Version 2)
Quarter: 2021Q3

REPORT INFORMATION
  Report Type: Spontaneous
  Country: AT (occurrence: AT)
  Receive Date: 20210712
  Receipt Date: 20210726
  Transmission Date: 20211014
  Serious: Yes (Death, Hospitalization, Other)
  Sender: FDA-Public Use
  Company Number: AT-EXELIXIS-CABO-21042205

PATIENT
  Sex: Male

DRUGS (1)
  1. CABOMETYX [Suspect]
     Active Substance: CABOZANTINIB S-MALATE
     Indication: BLADDER TRANSITIONAL CELL CARCINOMA
     Dosage: 40 MG, QD UNDER DIALYSIS
     Dates: start: 20210506

REACTIONS (5)
  - Malignant neoplasm progression [Unknown]
  - Respiratory failure [Fatal]
  - Anaemia [Unknown]
  - General physical health deterioration [Unknown]
  - Off label use [Unknown]

NARRATIVE: CASE EVENT DATE: 20210530
